FAERS Safety Report 4855233-7 (Version None)
Quarter: 2005Q4

REPORT INFORMATION
  Report Type: 
  Country: None (occurrence: None)
  Receive Date: 20051215
  Receipt Date: 20051207
  Transmission Date: 20060501
  Serious: Yes (Hospitalization)
  Sender: FDA-Public Use
  Company Number: US-MERCK-0512USA01487

PATIENT
  Age: 69 Year
  Sex: Female
  Weight: 66 kg

DRUGS (3)
  1. VIOXX [Suspect]
     Indication: PAIN
     Route: 048
     Dates: start: 19990101, end: 20010101
  2. ASPIRIN [Concomitant]
     Route: 065
  3. TYLENOL [Concomitant]
     Route: 065

REACTIONS (14)
  - ANXIETY [None]
  - AORTIC VALVE STENOSIS [None]
  - BRONCHOSPASM [None]
  - BUNION [None]
  - CARDIAC MURMUR [None]
  - CEREBROVASCULAR ACCIDENT [None]
  - CHEST PAIN [None]
  - CORONARY ARTERY DISEASE [None]
  - DEPRESSION [None]
  - HYPOXIA [None]
  - LOCAL SWELLING [None]
  - PNEUMONIA [None]
  - PULMONARY OEDEMA [None]
  - ROTATOR CUFF SYNDROME [None]
